FAERS Safety Report 24631414 (Version 1)
Quarter: 2024Q4

REPORT INFORMATION
  Report Type: Other
  Country: CN (occurrence: CN)
  Receive Date: 20241118
  Receipt Date: 20241118
  Transmission Date: 20250115
  Serious: Yes (Hospitalization, Other)
  Sender: BIONPHARMA INC.
  Company Number: CN-Bion-014284

PATIENT
  Age: 13 Year
  Sex: Female

DRUGS (1)
  1. METHIMAZOLE [Suspect]
     Active Substance: METHIMAZOLE
     Indication: Graves^ disease
     Dosage: 7.5MG

REACTIONS (3)
  - Pancytopenia [Recovered/Resolved]
  - Thyrotoxic crisis [Recovered/Resolved]
  - Intentional product misuse [Unknown]
